FAERS Safety Report 8548783-3 (Version None)
Quarter: 2012Q3

REPORT INFORMATION
  Report Type: 
  Country: None (occurrence: None)
  Receive Date: 20120730
  Receipt Date: 20120719
  Transmission Date: 20120928
  Serious: Yes (Hospitalization)
  Sender: FDA-Public Use
  Company Number: FR-BRISTOL-MYERS SQUIBB COMPANY-15264971

PATIENT
  Age: 43 Year
  Sex: Male
  Weight: 66 kg

DRUGS (7)
  1. NORVIR [Suspect]
     Dates: start: 20060301
  2. PRAVASTATIN [Concomitant]
     Indication: HYPERLIPIDAEMIA
     Route: 048
     Dates: start: 20090106
  3. LEVOCARNIL [Concomitant]
     Indication: LIPODYSTROPHY ACQUIRED
     Dates: start: 20050901
  4. LEVOCARNIL [Concomitant]
     Indication: NEUROPATHY PERIPHERAL
     Dates: start: 20050901
  5. ABACAVIR SULFATE/LAMIVUDINE [Suspect]
     Indication: HIV INFECTION
     Dosage: 1DF= 1 TAB, ALSO ON 31MAR2006
     Route: 048
     Dates: start: 20060331
  6. ANDROTARDYL [Concomitant]
     Indication: HYPOGONADISM
     Route: 030
     Dates: start: 20071016
  7. REYATAZ [Suspect]
     Indication: HIV INFECTION
     Route: 048
     Dates: start: 20060331, end: 20090409

REACTIONS (1)
  - NEPHROLITHIASIS [None]
